FAERS Safety Report 8262932-6 (Version None)
Quarter: 2012Q2

REPORT INFORMATION
  Report Type: 
  Country: None (occurrence: None)
  Receive Date: 20120405
  Receipt Date: 20120403
  Transmission Date: 20120825
  Serious: Yes (Life-Threatening, Hospitalization, Other)
  Sender: FDA-Public Use
  Company Number: LB-GLAXOSMITHKLINE-B0793422A

PATIENT
  Age: 20 Year
  Sex: Male

DRUGS (1)
  1. PROMACTA [Suspect]
     Indication: ACUTE LEUKAEMIA
     Dosage: 50MG PER DAY
     Route: 065
     Dates: start: 20120315, end: 20120322

REACTIONS (1)
  - PLATELET COUNT DECREASED [None]
